FAERS Safety Report 18526981 (Version 1)
Quarter: 2020Q4

REPORT INFORMATION
  Report Type: Spontaneous
  Country: BE (occurrence: BE)
  Receive Date: 20201120
  Receipt Date: 20201120
  Transmission Date: 20210114
  Serious: Yes (Life-Threatening, Hospitalization)
  Sender: FDA-Public Use
  Company Number: BE-MACLEODS PHARMACEUTICALS US LTD-MAC2020029158

PATIENT

DRUGS (1)
  1. VENLAFAXINE [Suspect]
     Active Substance: VENLAFAXINE HYDROCHLORIDE
     Indication: PRODUCT USED FOR UNKNOWN INDICATION
     Dosage: 12G OF SUSTAINED-RELEASE, SINGLE
     Route: 048

REACTIONS (4)
  - Intentional overdose [Recovered/Resolved]
  - Cardiac failure acute [Recovered/Resolved]
  - Suicide attempt [Recovered/Resolved]
  - Cardiogenic shock [Recovered/Resolved]
